FAERS Safety Report 16007140 (Version 1)
Quarter: 2019Q1

REPORT INFORMATION
  Report Type: Report from Study
  Country: KW (occurrence: KW)
  Receive Date: 20190226
  Receipt Date: 20190226
  Transmission Date: 20190418
  Serious: Yes (Other)
  Sender: FDA-Public Use
  Company Number: KW-JNJFOC-20190224710

PATIENT
  Sex: Female
  Weight: 56 kg

DRUGS (2)
  1. SIMPONI [Suspect]
     Active Substance: GOLIMUMAB
     Indication: COLITIS ULCERATIVE
     Route: 058
     Dates: start: 20181112
  2. PENTASA [Concomitant]
     Active Substance: MESALAMINE
     Dosage: TWO ENVELOPES ONE TIME DAILY
     Route: 065
     Dates: start: 2016

REACTIONS (2)
  - Colectomy [Unknown]
  - Treatment noncompliance [Unknown]
